FAERS Safety Report 11532586 (Version 1)
Quarter: 2015Q3

REPORT INFORMATION
  Report Type: Spontaneous
  Country: US (occurrence: US)
  Receive Date: 20150921
  Receipt Date: 20150921
  Transmission Date: 20151125
  Serious: Yes (Hospitalization, Other)
  Sender: FDA-Public Use
  Company Number: US-ASTELLAS-2015US033813

PATIENT
  Sex: Female

DRUGS (2)
  1. TARCEVA [Suspect]
     Active Substance: ERLOTINIB HYDROCHLORIDE
     Indication: NON-SMALL CELL LUNG CANCER STAGE IV
     Route: 065
  2. TARCEVA [Suspect]
     Active Substance: ERLOTINIB HYDROCHLORIDE
     Dosage: 100 MG, ONCE DAILY,WITH 2 DAYS OFF DURING THE WEEKEND
     Route: 048

REACTIONS (14)
  - Haematemesis [Unknown]
  - Dysphagia [Not Recovered/Not Resolved]
  - Vomiting [Not Recovered/Not Resolved]
  - Full blood count decreased [Unknown]
  - Fatigue [Unknown]
  - Oesophageal stenosis [Not Recovered/Not Resolved]
  - Gastric haemorrhage [Unknown]
  - Pain [Not Recovered/Not Resolved]
  - Asthenia [Unknown]
  - Aortic injury [Unknown]
  - Gastrointestinal haemorrhage [Unknown]
  - Aggression [Not Recovered/Not Resolved]
  - Drug intolerance [Unknown]
  - Oesophageal hypomotility [Not Recovered/Not Resolved]
